FAERS Safety Report 19130322 (Version 1)
Quarter: 2021Q2

REPORT INFORMATION
  Report Type: Spontaneous
  Country: US (occurrence: US)
  Receive Date: 20210413
  Receipt Date: 20210413
  Transmission Date: 20210717
  Serious: Yes (Other)
  Sender: FDA-Public Use
  Company Number: US-BAXTER-2021BAX006764

PATIENT
  Sex: Male

DRUGS (9)
  1. CYCLOPHOSPHAMIDE FOR INJECTION, USP [Suspect]
     Active Substance: CYCLOPHOSPHAMIDE
     Dosage: 19 CYCLES OF CVP
     Route: 065
  2. VINCRISTINE [Suspect]
     Active Substance: VINCRISTINE
     Dosage: 15 CYCLES OF CVP
     Route: 065
     Dates: end: 197204
  3. PREDNISONE. [Suspect]
     Active Substance: PREDNISONE
     Dosage: 19 CYCLES OF CVP, FULL DOSES OF PREDNISONE
     Route: 065
  4. CYCLOPHOSPHAMIDE FOR INJECTION, USP [Suspect]
     Active Substance: CYCLOPHOSPHAMIDE
     Indication: LYMPHOCYTIC LYMPHOMA
     Dosage: 11 CYCLES OF CVP
     Route: 065
  5. PREDNISONE. [Suspect]
     Active Substance: PREDNISONE
     Indication: LYMPHOCYTIC LYMPHOMA
     Dosage: 11 CYCLES OF CVP, 200 MG/DAY IN EACH CYCLE
     Route: 065
  6. PREDNISONE. [Suspect]
     Active Substance: PREDNISONE
     Dosage: 15 CYCLES OF CVP
     Route: 065
     Dates: end: 197204
  7. VINCRISTINE [Suspect]
     Active Substance: VINCRISTINE
     Dosage: 19 CYCLES OF CVP
     Route: 065
  8. CYCLOPHOSPHAMIDE FOR INJECTION, USP [Suspect]
     Active Substance: CYCLOPHOSPHAMIDE
     Dosage: 15 CYCLES OF CVP
     Route: 065
     Dates: end: 197204
  9. VINCRISTINE [Suspect]
     Active Substance: VINCRISTINE
     Indication: LYMPHOCYTIC LYMPHOMA
     Dosage: 11 CYCLES OF CVP
     Route: 065

REACTIONS (1)
  - Osteonecrosis [Unknown]

NARRATIVE: CASE EVENT DATE: 197204
